FAERS Safety Report 5933099-1 (Version None)
Quarter: 2008Q4

REPORT INFORMATION
  Report Type: 
  Country: None (occurrence: None)
  Receive Date: 20081028
  Receipt Date: 20081027
  Transmission Date: 20090506
  Serious: Yes (Hospitalization, Other)
  Sender: FDA-Public Use
  Company Number: KR-WYE-H05842008

PATIENT
  Sex: Male
  Weight: 58.4 kg

DRUGS (5)
  1. NEXAVAR [Suspect]
     Indication: RENAL CELL CARCINOMA
     Route: 048
     Dates: start: 20080627, end: 20080821
  2. CODEINE SUL TAB [Concomitant]
     Indication: COUGH
     Dosage: NOT PROVIDED
     Dates: start: 20080802
  3. NORVASC [Concomitant]
     Indication: HYPERTENSION
     Dosage: NOT PROVIDED
     Dates: start: 20080626
  4. BETADINE [Concomitant]
     Dosage: NOT PROVIDED
     Route: 048
     Dates: start: 20080425
  5. FREKATUSS [Concomitant]
     Dosage: NOT PROVIDED
     Route: 048
     Dates: start: 20080425

REACTIONS (3)
  - ALANINE AMINOTRANSFERASE INCREASED [None]
  - ASPARTATE AMINOTRANSFERASE INCREASED [None]
  - PNEUMONIA [None]
